FAERS Safety Report 10646096 (Version 1)
Quarter: 2014Q4

REPORT INFORMATION
  Report Type: Spontaneous
  Country: FR (occurrence: FR)
  Receive Date: 20141211
  Receipt Date: 20141211
  Transmission Date: 20150529
  Serious: Yes (Death, Life-Threatening, Hospitalization, Other)
  Sender: FDA-Public Use
  Company Number: FR-MYLANLABS-2014M1013618

PATIENT

DRUGS (4)
  1. FONDAPARINUX [Suspect]
     Active Substance: FONDAPARINUX
     Indication: ARRHYTHMIA
     Dosage: 7.5 MG/0.6ML, QD
     Route: 058
     Dates: start: 20130306, end: 20130314
  2. COUMADINE [Suspect]
     Active Substance: WARFARIN SODIUM
     Indication: PRODUCT USED FOR UNKNOWN INDICATION
     Dosage: 2 MG, BID
     Route: 048
     Dates: start: 20130306, end: 20130314
  3. AMLOR [Concomitant]
     Active Substance: AMLODIPINE BESYLATE
     Route: 048
  4. KARDEGIC [Suspect]
     Active Substance: ASPIRIN LYSINE
     Dosage: 7.5 MG, QD
     Route: 048
     Dates: start: 20130306, end: 20130313

REACTIONS (6)
  - Shock haemorrhagic [Recovered/Resolved]
  - Renal failure [Fatal]
  - Anaemia [Recovered/Resolved]
  - Intestinal obstruction [Recovering/Resolving]
  - General physical health deterioration [Fatal]
  - Haematoma [Recovering/Resolving]

NARRATIVE: CASE EVENT DATE: 201303
